FAERS Safety Report 5231994-2 (Version None)
Quarter: 2007Q1

REPORT INFORMATION
  Report Type: 
  Country: None (occurrence: None)
  Receive Date: 20070202
  Receipt Date: 20070123
  Transmission Date: 20070707
  Serious: Yes (Hospitalization)
  Sender: FDA-Public Use
  Company Number: FABR-11710

PATIENT
  Age: 30 Year
  Sex: Male
  Weight: 70 kg

DRUGS (5)
  1. FABRAZYME [Suspect]
     Indication: FABRY'S DISEASE
     Dosage: 70 MG Q2WKS IV
     Route: 042
     Dates: start: 20050110, end: 20060801
  2. PRILOSEC [Concomitant]
  3. COZAAR [Concomitant]
  4. LASIX [Concomitant]
  5. REGLAN [Concomitant]

REACTIONS (9)
  - CATHETER RELATED INFECTION [None]
  - KLEBSIELLA INFECTION [None]
  - PANCREATITIS RELAPSING [None]
  - PERITONEAL DIALYSIS [None]
  - PERITONITIS [None]
  - PSEUDOCYST [None]
  - RENAL FAILURE [None]
  - STAPHYLOCOCCAL INFECTION [None]
  - TREATMENT NONCOMPLIANCE [None]
